FAERS Safety Report 8320579-7 (Version None)
Quarter: 2012Q2

REPORT INFORMATION
  Report Type: 
  Country: None (occurrence: None)
  Receive Date: 20120430
  Receipt Date: 20120423
  Transmission Date: 20120825
  Serious: Yes (Hospitalization, Other)
  Sender: FDA-Public Use
  Company Number: US-PFIZER INC-2012101253

PATIENT
  Sex: Female

DRUGS (11)
  1. TERIPARATIDE [Suspect]
     Dosage: 20 UG, 1X/DAY
  2. TERIPARATIDE [Suspect]
     Dosage: 20 UG, 1X/DAY
  3. CORTISONE [Concomitant]
     Dosage: UNK
  4. NEXIUM [Concomitant]
     Dosage: UNK
  5. MIRAPEX [Concomitant]
     Indication: RESTLESS LEGS SYNDROME
     Dosage: UNK
  6. CELEBREX [Concomitant]
     Dosage: UNK
  7. HYDROCHLOROTHIAZIDE [Concomitant]
     Dosage: UNK
  8. TERIPARATIDE [Suspect]
     Dosage: 20 UG, 1X/DAY
  9. FOSAMAX [Concomitant]
     Dosage: UNK
  10. TERIPARATIDE [Suspect]
     Indication: OSTEOPOROSIS
     Dosage: 20 UG, 1X/DAY
  11. GABAPENTIN [Suspect]
     Indication: RESTLESS LEGS SYNDROME
     Dosage: UNK
     Route: 048

REACTIONS (12)
  - CONVULSION [None]
  - DIZZINESS [None]
  - VOMITING [None]
  - MYOCARDIAL INFARCTION [None]
  - ABDOMINAL DISCOMFORT [None]
  - NAUSEA [None]
  - MUSCLE STRAIN [None]
  - LOSS OF CONSCIOUSNESS [None]
  - CHEST PAIN [None]
  - PAIN IN JAW [None]
  - PAIN IN EXTREMITY [None]
  - FALL [None]
